FAERS Safety Report 21330593 (Version 1)
Quarter: 2022Q3

REPORT INFORMATION
  Report Type: Spontaneous
  Country: US (occurrence: None)
  Receive Date: 20220913
  Receipt Date: 20220913
  Transmission Date: 20221026
  Serious: No
  Sender: FDA-Public Use
  Company Number: None

PATIENT
  Sex: Female

DRUGS (1)
  1. IBRANCE [Suspect]
     Active Substance: PALBOCICLIB
     Indication: Breast cancer
     Dosage: 100MG ONCE DAILY ORAL
     Route: 048
     Dates: start: 20191029

REACTIONS (5)
  - White blood cell count decreased [None]
  - Therapy interrupted [None]
  - Neutropenia [None]
  - Immunosuppression [None]
  - Infection [None]
